FAERS Safety Report 7413166-6 (Version None)
Quarter: 2011Q2

REPORT INFORMATION
  Report Type: 
  Country: None (occurrence: None)
  Receive Date: 20110413
  Receipt Date: 20110411
  Transmission Date: 20111010
  Serious: Yes (Other)
  Sender: FDA-Public Use
  Company Number: HR-PFIZER INC-2011078861

PATIENT
  Age: 57 Year
  Sex: Male

DRUGS (6)
  1. DIFLUCAN [Suspect]
     Dosage: 100 MG, 2X/DAY
     Route: 048
     Dates: start: 20110222
  2. CONTROLOC [Concomitant]
     Dosage: UNK
     Route: 048
  3. PROGRAF [Interacting]
     Indication: PROPHYLAXIS AGAINST TRANSPLANT REJECTION
     Dosage: 4 MG, UNK
     Route: 042
     Dates: start: 20110222
  4. FRAXIPARINE [Concomitant]
     Dosage: 0.4 ML, UNK
     Route: 058
  5. CELLCEPT [Interacting]
     Indication: PROPHYLAXIS AGAINST TRANSPLANT REJECTION
     Dosage: 1 G, 2X/DAY
     Route: 042
     Dates: start: 20110222
  6. PRAZINE /NEZ/ [Concomitant]

REACTIONS (5)
  - DISORIENTATION [None]
  - DRUG INTERACTION [None]
  - RESTLESSNESS [None]
  - AGITATION [None]
  - DELIRIUM [None]
